FAERS Safety Report 8201210-8 (Version None)
Quarter: 2012Q1

REPORT INFORMATION
  Report Type: 
  Country: None (occurrence: None)
  Receive Date: 20120312
  Receipt Date: 20120305
  Transmission Date: 20120608
  Serious: Yes (Death)
  Sender: FDA-Public Use
  Company Number: PHHY2012JP019518

PATIENT
  Age: 57 Year
  Sex: Male

DRUGS (2)
  1. CYCLOSPORINE [Suspect]
     Indication: CORD BLOOD TRANSPLANT THERAPY
  2. METHOTREXATE [Concomitant]
     Indication: CORD BLOOD TRANSPLANT THERAPY

REACTIONS (2)
  - CARDIAC FAILURE [None]
  - PNEUMONIA [None]
